FAERS Safety Report 24748143 (Version 1)
Quarter: 2024Q4

REPORT INFORMATION
  Report Type: Spontaneous
  Country: PT (occurrence: PT)
  Receive Date: 20241218
  Receipt Date: 20241218
  Transmission Date: 20250114
  Serious: Yes (Life-Threatening, Hospitalization, Other)
  Sender: EXELA PHARMA SCIENCES
  Company Number: PT-EXELAPHARMA-2024EXLA00037

PATIENT
  Age: 75 Year
  Sex: Female

DRUGS (1)
  1. TRANEXAMIC ACID [Suspect]
     Active Substance: TRANEXAMIC ACID
     Indication: Haemostasis
     Dosage: 1 GRAM
     Route: 061

REACTIONS (9)
  - Neurotoxicity [Recovered/Resolved]
  - Hypertension [Recovered/Resolved]
  - Arrhythmia [Recovered/Resolved]
  - Seizure [Recovered/Resolved]
  - Tachycardia [Recovered/Resolved]
  - Anorectal discomfort [Recovered/Resolved]
  - Back pain [Recovered/Resolved]
  - Myoclonus [Recovered/Resolved]
  - Incorrect route of product administration [Recovered/Resolved]
